FAERS Safety Report 7499069-X (Version None)
Quarter: 2011Q2

REPORT INFORMATION
  Report Type: 
  Country: None (occurrence: None)
  Receive Date: 20110524
  Receipt Date: 20110519
  Transmission Date: 20111010
  Serious: Yes (Life-Threatening, Hospitalization)
  Sender: FDA-Public Use
  Company Number: DE-ASTRAZENECA-2011SE30663

PATIENT
  Age: 50 Year
  Sex: Female

DRUGS (4)
  1. LORAZEPAM [Concomitant]
  2. SEROQUEL [Suspect]
     Indication: PSYCHOTIC DISORDER
     Route: 048
  3. ZOPICLON [Concomitant]
  4. SEROQUEL [Suspect]
     Dosage: 40 TABLETS OF 400 MG AND 20 TABLETS OF 150 MG, ONCE/SINGLE ADMINISTRATION
     Route: 048

REACTIONS (6)
  - SUICIDE ATTEMPT [None]
  - HYPOTENSION [None]
  - INTENTIONAL OVERDOSE [None]
  - SOMNOLENCE [None]
  - BEZOAR [None]
  - BLOOD CREATINE PHOSPHOKINASE INCREASED [None]
